FAERS Safety Report 11379431 (Version 1)
Quarter: 2015Q3

REPORT INFORMATION
  Report Type: Spontaneous
  Country: CZ (occurrence: CZ)
  Receive Date: 20150814
  Receipt Date: 20150814
  Transmission Date: 20151125
  Serious: Yes (Hospitalization)
  Sender: FDA-Public Use
  Company Number: CZ-ABBVIE-15K-217-1440677-00

PATIENT
  Age: 31 Year
  Sex: Male

DRUGS (1)
  1. HUMIRA [Suspect]
     Active Substance: ADALIMUMAB
     Indication: CROHN^S DISEASE
     Route: 058
     Dates: start: 2011, end: 20150606

REACTIONS (9)
  - Chills [Recovered/Resolved]
  - Herpes zoster infection neurological [Recovering/Resolving]
  - Swelling face [Recovered/Resolved]
  - Headache [Recovered/Resolved]
  - Fatigue [Recovering/Resolving]
  - Pyrexia [Recovered/Resolved]
  - Lip pruritus [Recovering/Resolving]
  - Lymphadenopathy [Recovering/Resolving]
  - Impetigo [Recovered/Resolved]

NARRATIVE: CASE EVENT DATE: 201506
